FAERS Safety Report 5601730-6 (Version None)
Quarter: 2008Q1

REPORT INFORMATION
  Report Type: 
  Country: None (occurrence: None)
  Receive Date: 20080124
  Receipt Date: 20080114
  Transmission Date: 20080703
  Serious: Yes (Hospitalization)
  Sender: FDA-Public Use
  Company Number: FR-ABBOTT-08P-056-0433324-00

PATIENT
  Sex: Male

DRUGS (5)
  1. NORVIR [Suspect]
     Indication: HIV INFECTION
     Route: 048
     Dates: start: 20071022, end: 20071213
  2. RALTEGRAVIR [Suspect]
     Indication: HIV INFECTION
     Route: 048
     Dates: start: 20071022, end: 20071213
  3. DARUNAVIR [Suspect]
     Indication: HIV INFECTION
     Route: 048
     Dates: start: 20071022, end: 20071213
  4. MYCOPHENOLATE MOFETIL [Concomitant]
     Indication: LIVER TRANSPLANT
  5. TACROLIMUS [Concomitant]
     Indication: DRUG USE FOR UNKNOWN INDICATION

REACTIONS (9)
  - BLOOD CREATININE DECREASED [None]
  - CD4 LYMPHOCYTES DECREASED [None]
  - CYTOLYTIC HEPATITIS [None]
  - DRUG LEVEL DECREASED [None]
  - HEPATITIS [None]
  - HEPATITIS C [None]
  - HEPATITIS CHOLESTATIC [None]
  - MYELOCYTOSIS [None]
  - RENAL FAILURE [None]
